FAERS Safety Report 5481563-4 (Version None)
Quarter: 2007Q4

REPORT INFORMATION
  Report Type: 
  Country: None (occurrence: None)
  Receive Date: 20071010
  Receipt Date: 20070926
  Transmission Date: 20080405
  Serious: Yes (Death)
  Sender: FDA-Public Use
  Company Number: AU-RANBAXY-2007RR-10376

PATIENT

DRUGS (3)
  1. PRAVASTATIN [Suspect]
     Dosage: 40 MG, UNK
  2. ASPIRIN [Concomitant]
  3. FRUSEMIDE [Concomitant]

REACTIONS (1)
  - INTERSTITIAL LUNG DISEASE [None]
